FAERS Safety Report 15424561 (Version 1)
Quarter: 2018Q3

REPORT INFORMATION
  Report Type: Spontaneous
  Country: US (occurrence: US)
  Receive Date: 20180918
  Receipt Date: 20180918
  Transmission Date: 20181010
  Serious: Yes (Hospitalization)
  Sender: FDA-Public Use
  Company Number: None

PATIENT
  Age: 14 Year
  Sex: Female
  Weight: 51.5 kg

DRUGS (6)
  1. DAUNORUBICIN [Suspect]
     Active Substance: DAUNORUBICIN
     Dates: end: 20180829
  2. METHOTREXATE. [Suspect]
     Active Substance: METHOTREXATE
     Dates: end: 20180816
  3. PREDNISONE. [Suspect]
     Active Substance: PREDNISONE
     Dates: end: 20180902
  4. VINCRISTINE SULFATE. [Suspect]
     Active Substance: VINCRISTINE SULFATE
     Dates: end: 20180829
  5. ONCASPAR [Suspect]
     Active Substance: PEGASPARGASE
     Dates: end: 20180812
  6. CYTARABINE. [Suspect]
     Active Substance: CYTARABINE
     Dates: end: 20180808

REACTIONS (15)
  - Hyperglycaemia [None]
  - Pain [None]
  - Pancreatitis acute [None]
  - Haemodynamic instability [None]
  - Continuous haemodiafiltration [None]
  - Hepatic failure [None]
  - Lethargy [None]
  - Renal failure [None]
  - Hypotension [None]
  - Pancreatitis necrotising [None]
  - Asthenia [None]
  - Mental status changes [None]
  - Blood lactic acid increased [None]
  - Dizziness [None]
  - Escherichia test positive [None]

NARRATIVE: CASE EVENT DATE: 20180910
